FAERS Safety Report 7351773-X (Version None)
Quarter: 2011Q1

REPORT INFORMATION
  Report Type: 
  Country: None (occurrence: None)
  Receive Date: 20110315
  Receipt Date: 20100806
  Transmission Date: 20110831
  Serious: Yes (Hospitalization, Other)
  Sender: FDA-Public Use
  Company Number: US-BAYER-200942717NA

PATIENT
  Sex: Female
  Weight: 109 kg

DRUGS (16)
  1. ADVAIR DISKUS 100/50 [Concomitant]
  2. FERROUS SULFATE TAB [Concomitant]
  3. OMEPRAZOLE [Concomitant]
  4. OCELLA [Suspect]
     Indication: PREMENSTRUAL SYNDROME
     Dosage: UNK
     Dates: start: 20090201, end: 20090501
  5. SERTRALINE [Concomitant]
  6. CLONAZEPAM [Concomitant]
  7. AZITHROMYCIN [Concomitant]
  8. CYCLOBENZAPRINE [Concomitant]
  9. DICLOFENAC [Concomitant]
  10. TRAZODONE HCL [Concomitant]
  11. IBUPROFEN [Concomitant]
  12. CETIRIZINE [Concomitant]
  13. YASMIN [Suspect]
     Indication: PREMENSTRUAL SYNDROME
     Dosage: UNK
     Dates: start: 20070101, end: 20080601
  14. YAZ [Suspect]
     Indication: PREMENSTRUAL SYNDROME
     Dates: start: 20050101, end: 20090101
  15. PREDNISONE [Concomitant]
  16. SINGULAIR [Concomitant]

REACTIONS (5)
  - PULMONARY EMBOLISM [None]
  - DEPRESSION [None]
  - DEEP VEIN THROMBOSIS [None]
  - MENTAL DISORDER [None]
  - MYOCARDIAL INFARCTION [None]
